APPROVED DRUG PRODUCT: ACETAMINOPHEN AND IBUPROFEN
Active Ingredient: ACETAMINOPHEN; IBUPROFEN
Strength: 250MG;125MG
Dosage Form/Route: TABLET;ORAL
Application: A217241 | Product #001
Applicant: STRIDES PHARMA GLOBAL PTE LTD
Approved: Jan 17, 2025 | RLD: No | RS: No | Type: DISCN